FAERS Safety Report 8336724-3 (Version None)
Quarter: 2012Q2

REPORT INFORMATION
  Report Type: 
  Country: None (occurrence: None)
  Receive Date: 20120504
  Receipt Date: 20120430
  Transmission Date: 20120825
  Serious: Yes (Hospitalization)
  Sender: FDA-Public Use
  Company Number: CA-AMGEN-CANCT2012011224

PATIENT
  Age: 75 Year
  Sex: Male

DRUGS (10)
  1. ATROPINE [Concomitant]
     Indication: ADVERSE DRUG REACTION
     Dosage: 0.4 MG, Q2WK
     Route: 058
     Dates: start: 20111212
  2. IMODIUM [Concomitant]
     Indication: DIARRHOEA
     Dosage: 6 MG, PRN
     Route: 048
     Dates: start: 20120101, end: 20120223
  3. PEGFILGRASTIM [Suspect]
     Indication: COLORECTAL CANCER METASTATIC
     Dosage: 6 MG, UNK
     Route: 058
     Dates: start: 20111215
  4. AMITRIPTYLINE HCL [Concomitant]
     Indication: INSOMNIA
     Dosage: 75 MG, QD
     Route: 048
     Dates: start: 20060101
  5. CRESTOR [Concomitant]
     Indication: HYPERLIPIDAEMIA
     Dosage: 10 MG, QD
     Route: 048
     Dates: start: 20000101
  6. ASPIRIN [Concomitant]
     Indication: PROPHYLAXIS
     Dosage: 80 MG, QD
     Route: 048
     Dates: start: 20000101
  7. BISOPROLOL FUMARATE [Concomitant]
     Indication: HYPERTENSION
     Dosage: 5 MG, QD
     Route: 048
     Dates: start: 20050101
  8. DECADRON [Concomitant]
     Indication: NAUSEA
     Dosage: 10 MG, Q2WK
     Route: 042
     Dates: start: 20111212
  9. ACETAMINOPHEN W/ CODEINE [Concomitant]
     Indication: NECK PAIN
     Dosage: 30 MG, PRN
     Route: 048
     Dates: start: 20120131
  10. ZOFRAN [Concomitant]
     Indication: NAUSEA
     Dosage: 8 MG, Q2WK
     Route: 042
     Dates: start: 20111212

REACTIONS (4)
  - FEBRILE NEUTROPENIA [None]
  - RECTAL HAEMORRHAGE [None]
  - DELIRIUM [None]
  - PULMONARY EMBOLISM [None]
